FAERS Safety Report 22539445 (Version 2)
Quarter: 2024Q2

REPORT INFORMATION
  Report Type: Spontaneous
  Country: PT (occurrence: PT)
  Receive Date: 20230609
  Receipt Date: 20240510
  Transmission Date: 20240715
  Serious: Yes (Hospitalization, Other)
  Sender: FDA-Public Use
  Company Number: PT-AUROBINDO-AUR-APL-2023-041285

PATIENT
  Age: 62 Year
  Sex: Female

DRUGS (1)
  1. TRANEXAMIC ACID [Suspect]
     Active Substance: TRANEXAMIC ACID
     Indication: Varicose vein
     Dosage: UNK
     Route: 037

REACTIONS (9)
  - Myoclonus [Recovered/Resolved]
  - Altered state of consciousness [Unknown]
  - Cardio-respiratory arrest [Unknown]
  - Muscle contractions involuntary [Recovered/Resolved]
  - Wrong product administered [Unknown]
  - Hepatic cytolysis [Unknown]
  - Pneumonia aspiration [Unknown]
  - Rhabdomyolysis [Unknown]
  - Stress cardiomyopathy [Unknown]
